FAERS Safety Report 7225652-2 (Version None)
Quarter: 2011Q1

REPORT INFORMATION
  Report Type: 
  Country: None (occurrence: None)
  Receive Date: 20110110
  Receipt Date: 20110110
  Transmission Date: 20110831
  Serious: Yes (Hospitalization)
  Sender: FDA-Public Use
  Company Number: None

PATIENT
  Sex: Male
  Weight: 86.637 kg

DRUGS (1)
  1. LOVENOX [Suspect]
     Indication: THROMBOSIS PROPHYLAXIS
     Dosage: DAILY SQ
     Route: 058
     Dates: start: 20110105, end: 20110107

REACTIONS (4)
  - DIZZINESS POSTURAL [None]
  - HAEMOGLOBIN DECREASED [None]
  - ABASIA [None]
  - CONTUSION [None]
